FAERS Safety Report 4771982-3 (Version None)
Quarter: 2005Q3

REPORT INFORMATION
  Report Type: 
  Country: None (occurrence: None)
  Receive Date: 20050916
  Receipt Date: 20050913
  Transmission Date: 20060218
  Serious: Yes (Hospitalization)
  Sender: FDA-Public Use
  Company Number: GB-MERCK-0509GBR00079

PATIENT
  Age: 65 Year

DRUGS (13)
  1. DOMPERIDONE [Suspect]
     Route: 048
  2. WARFARIN [Concomitant]
     Indication: THROMBOSIS PROPHYLAXIS
     Route: 048
  3. OMEPRAZOLE [Concomitant]
     Indication: PROPHYLAXIS AGAINST GASTROINTESTINAL ULCER
     Route: 048
  4. POTASSIUM CHLORIDE [Concomitant]
     Indication: BLOOD POTASSIUM DECREASED
     Route: 048
  5. BENDROFLUMETHIAZIDE [Concomitant]
     Indication: HYPERTENSION
     Route: 065
  6. DEXAMETHASONE [Suspect]
     Route: 042
     Dates: start: 20050531
  7. ONDANSETRON [Suspect]
     Route: 048
  8. LEVOLEUCOVORIN CALCIUM [Suspect]
     Route: 042
  9. DECADRON [Suspect]
     Route: 048
  10. OXALIPLATIN [Suspect]
     Route: 042
     Dates: start: 20050531
  11. ONDANSETRON [Suspect]
     Route: 042
     Dates: start: 20050531
  12. FLUOROURACIL [Suspect]
     Route: 042
     Dates: start: 20050531, end: 20050501
  13. FLUOROURACIL [Suspect]
     Route: 042
     Dates: start: 20050601

REACTIONS (1)
  - CHOKING SENSATION [None]
